FAERS Safety Report 7561825-7 (Version None)
Quarter: 2011Q2

REPORT INFORMATION
  Report Type: 
  Country: None (occurrence: None)
  Receive Date: 20110621
  Receipt Date: 20110615
  Transmission Date: 20111010
  Serious: Yes (Other)
  Sender: FDA-Public Use
  Company Number: BR-PFIZER INC-2011083181

PATIENT
  Age: 54 Year
  Sex: Female
  Weight: 72 kg

DRUGS (7)
  1. SYNTHROID [Concomitant]
     Indication: HYPOTHYROIDISM
     Dosage: 35 UG, 1X/DAY
     Dates: start: 20010101
  2. PANTOGAR [Concomitant]
     Indication: ALOPECIA
     Dosage: UNK
  3. VARENICLINE TARTRATE [Suspect]
     Indication: TOBACCO ABUSE
     Dosage: 0.5 MG, 1X/DAY (0.5MG EVERY 24 HOURS)
     Route: 048
     Dates: start: 20110317, end: 20110101
  4. NEXIUM [Concomitant]
     Indication: GASTRITIS PROPHYLAXIS
     Dosage: 40 MG, 1X/DAY
     Dates: start: 20040101
  5. VARENICLINE TARTRATE [Suspect]
     Dosage: 0.5 MG, 2X/DAY
     Route: 048
     Dates: start: 20110101, end: 20110101
  6. VARENICLINE TARTRATE [Suspect]
     Dosage: 1 MG, 2X/DAY
     Route: 048
     Dates: start: 20110101, end: 20110101
  7. NEXIUM [Concomitant]
     Indication: ABDOMINAL PAIN UPPER

REACTIONS (3)
  - OESOPHAGEAL PAIN [None]
  - HEPATIC PAIN [None]
  - DYSPEPSIA [None]
